FAERS Safety Report 18739708 (Version 4)
Quarter: 2022Q2

REPORT INFORMATION
  Report Type: Report from Study
  Country: MX (occurrence: MX)
  Receive Date: 20210114
  Receipt Date: 20220415
  Transmission Date: 20220721
  Serious: Yes (Other)
  Sender: FDA-Public Use
  Company Number: PHHY2016MX120404

PATIENT
  Sex: Male
  Weight: 130 kg

DRUGS (9)
  1. EXFORGE HCT [Suspect]
     Active Substance: AMLODIPINE BESYLATE\HYDROCHLOROTHIAZIDE\VALSARTAN
     Indication: Hypertension
     Dosage: 1 DOSAGE FORM, QD, STARTED APPROXIMATELY 10 YEARS AGO
     Route: 048
  2. EXFORGE HCT [Suspect]
     Active Substance: AMLODIPINE BESYLATE\HYDROCHLOROTHIAZIDE\VALSARTAN
     Dosage: 1 DF (10 MG AMLODIPINE, 25 MG HYDROCHLOROTHIAZIDE AND 320 MG VALSARTAN), QD
     Route: 048
     Dates: start: 2015
  3. EXFORGE HCT [Suspect]
     Active Substance: AMLODIPINE BESYLATE\HYDROCHLOROTHIAZIDE\VALSARTAN
     Dosage: HALF MORE TABLET, QD, STARTED 3 YEARS AGO
     Route: 048
  4. TRAVATAN [Suspect]
     Active Substance: TRAVOPROST
     Indication: Eye disorder
     Dosage: UNK
     Route: 065
  5. TRAVATAN [Suspect]
     Active Substance: TRAVOPROST
     Indication: Ocular hypertension
     Dosage: 1 DF, QD (0.4 AS REPORTED) (DROP) (AT NIGHT IN EACH EYE)
     Route: 047
     Dates: start: 2016
  6. CORTISONE [Suspect]
     Active Substance: CORTISONE
     Indication: Surgery
     Dosage: UNK
     Route: 065
  7. CORTISONE [Suspect]
     Active Substance: CORTISONE
     Dosage: 50 MG (USED ONCE)
     Route: 065
     Dates: start: 2016, end: 2016
  8. OMEPRAZOLE [Concomitant]
     Active Substance: OMEPRAZOLE
     Indication: Abdominal discomfort
     Dosage: 1 DF, QD (IN THE MORNING) STARTED 2 YEARS AGO
     Route: 048
  9. TAMSULOSIN [Concomitant]
     Active Substance: TAMSULOSIN
     Indication: Prostatic disorder
     Dosage: UNK
     Route: 065

REACTIONS (13)
  - Urinary retention [Recovered/Resolved]
  - Retinal detachment [Recovered/Resolved]
  - Blindness unilateral [Not Recovered/Not Resolved]
  - Optic nerve injury [Not Recovered/Not Resolved]
  - Myopia [Unknown]
  - Astigmatism [Unknown]
  - Hypertension [Not Recovered/Not Resolved]
  - Anger [Unknown]
  - Eye pain [Unknown]
  - Visual impairment [Not Recovered/Not Resolved]
  - Weight increased [Not Recovered/Not Resolved]
  - Inappropriate schedule of product administration [Not Recovered/Not Resolved]
  - Wrong technique in product usage process [Unknown]

NARRATIVE: CASE EVENT DATE: 20160101
